FAERS Safety Report 16176985 (Version 3)
Quarter: 2020Q4

REPORT INFORMATION
  Report Type: Spontaneous
  Country: US (occurrence: US)
  Receive Date: 20190409
  Receipt Date: 20201225
  Transmission Date: 20210113
  Serious: Yes (Other)
  Sender: FDA-Public Use
  Company Number: US-SHIRE-US201911757

PATIENT
  Sex: Male

DRUGS (8)
  1. GATTEX [Suspect]
     Active Substance: TEDUGLUTIDE\WATER
     Indication: PRODUCT USED FOR UNKNOWN INDICATION
     Dosage: 0.43 (UNIT UNKNOWN), 1X/DAY:QD
     Route: 058
  2. GATTEX [Suspect]
     Active Substance: TEDUGLUTIDE\WATER
     Dosage: UNK UNK, QD
     Route: 058
     Dates: start: 20171129
  3. GATTEX [Suspect]
     Active Substance: TEDUGLUTIDE\WATER
     Dosage: UNK UNK, QD
     Route: 058
     Dates: start: 20171129
  4. GATTEX [Suspect]
     Active Substance: TEDUGLUTIDE\WATER
     Indication: PRODUCT USED FOR UNKNOWN INDICATION
     Dosage: 0.43 (UNIT UNKNOWN), 1X/DAY:QD
     Route: 058
  5. GATTEX [Suspect]
     Active Substance: TEDUGLUTIDE\WATER
     Indication: PRODUCT USED FOR UNKNOWN INDICATION
     Dosage: 0.43 (UNIT UNKNOWN), 1X/DAY:QD
     Route: 058
  6. GATTEX [Suspect]
     Active Substance: TEDUGLUTIDE\WATER
     Dosage: UNK UNK, QD
     Route: 058
     Dates: start: 20171129
  7. GATTEX [Suspect]
     Active Substance: TEDUGLUTIDE\WATER
     Dosage: UNK UNK, QD
     Route: 058
     Dates: start: 20171129
  8. GATTEX [Suspect]
     Active Substance: TEDUGLUTIDE\WATER
     Indication: PRODUCT USED FOR UNKNOWN INDICATION
     Dosage: 0.43 (UNIT UNKNOWN), 1X/DAY:QD
     Route: 058

REACTIONS (5)
  - Neuropathy peripheral [Not Recovered/Not Resolved]
  - Laboratory test abnormal [Recovering/Resolving]
  - Tooth extraction [Not Recovered/Not Resolved]
  - Insomnia [Not Recovered/Not Resolved]
  - Weight decreased [Not Recovered/Not Resolved]
